FAERS Safety Report 12342130 (Version 1)
Quarter: 2016Q2

REPORT INFORMATION
  Report Type: Spontaneous
  Country: US (occurrence: US)
  Receive Date: 20160506
  Receipt Date: 20160506
  Transmission Date: 20160815
  Serious: No
  Sender: FDA-Public Use
  Company Number: US-ANACOR-2016ANA00078

PATIENT
  Age: 57 Year
  Sex: Female
  Weight: 56.69 kg

DRUGS (1)
  1. KERYDIN [Suspect]
     Active Substance: TAVABOROLE
     Indication: FUNGAL INFECTION
     Dosage: 1 DOSAGE UNITS, ONCE
     Route: 061
     Dates: start: 201601, end: 201601

REACTIONS (3)
  - Application site pain [Recovered/Resolved]
  - Hypersensitivity [Recovered/Resolved]
  - Application site erythema [Recovered/Resolved]

NARRATIVE: CASE EVENT DATE: 201601
